FAERS Safety Report 25143627 (Version 1)
Quarter: 2025Q2

REPORT INFORMATION
  Report Type: Spontaneous
  Country: US (occurrence: US)
  Receive Date: 20250401
  Receipt Date: 20250401
  Transmission Date: 20250717
  Serious: No
  Sender: SANDOZ
  Company Number: US-SANDOZ-SDZ2025US019472

PATIENT
  Age: 29 Year

DRUGS (1)
  1. HYRIMOZ [Suspect]
     Active Substance: ADALIMUMAB-ADAZ
     Indication: Product used for unknown indication
     Route: 065
     Dates: start: 20250327, end: 20250327

REACTIONS (2)
  - Injection site discharge [Recovered/Resolved]
  - Wrong technique in device usage process [Recovered/Resolved]

NARRATIVE: CASE EVENT DATE: 20250327
